FAERS Safety Report 7772074-1 (Version None)
Quarter: 2011Q3

REPORT INFORMATION
  Report Type: 
  Country: None (occurrence: None)
  Receive Date: 20110920
  Receipt Date: 20110907
  Transmission Date: 20111222
  Serious: Yes (Life-Threatening, Hospitalization)
  Sender: FDA-Public Use
  Company Number: TUK2011A00126

PATIENT
  Age: 67 Year
  Sex: Male

DRUGS (5)
  1. ASPRIN (ACETYLSALICYLIC ACID) [Concomitant]
  2. METFORMIN HCL [Concomitant]
  3. SIMVASTATIN [Concomitant]
  4. GLICLAZIDE (GLICLAZIDE) [Concomitant]
  5. ACTOS [Suspect]
     Indication: DIABETES MELLITUS
     Dosage: 15 MG (15 MG) ORAL
     Route: 048
     Dates: start: 20080811

REACTIONS (2)
  - RENAL CELL CARCINOMA [None]
  - WEIGHT DECREASED [None]
